FAERS Safety Report 9605295 (Version 6)
Quarter: 2017Q4

REPORT INFORMATION
  Report Type: Report from Study
  Country: NL (occurrence: NL)
  Receive Date: 20131008
  Receipt Date: 20171101
  Transmission Date: 20180321
  Serious: Yes (Hospitalization, Other)
  Sender: FDA-Public Use
  Company Number: PHHO2013NL012566

PATIENT
  Age: 54 Year
  Sex: Female
  Weight: 80 kg

DRUGS (7)
  1. ACZ885 [Suspect]
     Active Substance: CANAKINUMAB
     Dosage: 50 MG, QUARTERLY
     Route: 058
     Dates: start: 20140211
  2. FUROSEMIDE. [Concomitant]
     Active Substance: FUROSEMIDE
     Indication: CARDIAC FAILURE
     Dosage: 20 MG, UNK
     Route: 065
     Dates: start: 20050623
  3. ACENOCOUMAROL [Concomitant]
     Active Substance: ACENOCOUMAROL
     Indication: ANEURYSM
     Dosage: 1 MG, UNK
     Route: 065
     Dates: start: 20120405
  4. SIMVASTATIN. [Concomitant]
     Active Substance: SIMVASTATIN
     Indication: CORONARY ARTERY DISEASE
     Dosage: 40 MG, UNK
     Route: 065
     Dates: start: 20050623
  5. BISOPROLOL [Concomitant]
     Active Substance: BISOPROLOL
     Indication: CORONARY ARTERY DISEASE
     Dosage: 25 MG, UNK
     Route: 065
     Dates: start: 20050830, end: 20130916
  6. ACZ885 [Suspect]
     Active Substance: CANAKINUMAB
     Indication: CARDIOVASCULAR EVENT PROPHYLAXIS
     Dosage: 50 MG, QUARTERLY
     Route: 058
     Dates: start: 20120807, end: 20131105
  7. CANDESARTAN. [Concomitant]
     Active Substance: CANDESARTAN
     Indication: CORONARY ARTERY DISEASE
     Dosage: 8 MG, UNK
     Route: 065
     Dates: start: 20050830, end: 20130916

REACTIONS (4)
  - Diverticulitis [Recovered/Resolved with Sequelae]
  - Pseudomonas infection [Recovered/Resolved]
  - Ileus [Recovered/Resolved]
  - Wound infection [Recovered/Resolved with Sequelae]

NARRATIVE: CASE EVENT DATE: 20130916
